FAERS Safety Report 8304742-7 (Version None)
Quarter: 2012Q2

REPORT INFORMATION
  Report Type: 
  Country: None (occurrence: None)
  Receive Date: 20120423
  Receipt Date: 20120413
  Transmission Date: 20120825
  Serious: Yes (Other)
  Sender: FDA-Public Use
  Company Number: US-UCBSA-052336

PATIENT
  Age: 62 Year
  Sex: Male
  Weight: 87.5 kg

DRUGS (12)
  1. ZETIA [Concomitant]
     Indication: HYPERCHOLESTEROLAEMIA
     Route: 048
  2. LORTAB [Suspect]
     Indication: PAIN
     Dosage: 10/500 MG, 4 PILLS A DAY, FIRST DOSE 8 -10 YEARS AGO
     Route: 048
  3. ASPIRIN [Concomitant]
     Indication: THROMBOSIS
     Route: 048
  4. METHADONE HCL [Concomitant]
     Indication: PAIN
     Dosage: 2.5 MG IN MORNING AND IN NIGHT
     Route: 048
  5. COZAAR [Concomitant]
     Indication: HYPERTENSION
     Route: 048
  6. COMBIVENT [Concomitant]
     Indication: BRONCHITIS CHRONIC
     Dosage: 2 PUFS AS NEEDED
     Route: 048
  7. MIRALEX [Concomitant]
     Indication: FUNCTIONAL GASTROINTESTINAL DISORDER
     Dosage: 2 CAPULES TWICE A WEEK AS NEEDED
     Route: 048
  8. PREVACID [Concomitant]
     Dosage: 160 MG: FREQUENCY:  1X
     Route: 048
  9. UROXATROL [Concomitant]
     Indication: PROSTATIC DISORDER
     Route: 048
  10. PREVACID [Concomitant]
     Indication: GASTRIC DISORDER
     Route: 048
  11. LORTAB [Suspect]
     Dosage: 10/500 MG, 4 PILLS A DAY
     Route: 048
     Dates: start: 20120201, end: 20120201
  12. ALEGRA [Concomitant]
     Indication: HYPERSENSITIVITY

REACTIONS (3)
  - PRURITUS GENERALISED [None]
  - DRUG INEFFECTIVE [None]
  - URTICARIA [None]
